FAERS Safety Report 7583469-3 (Version None)
Quarter: 2011Q2

REPORT INFORMATION
  Report Type: 
  Country: None (occurrence: None)
  Receive Date: 20110628
  Receipt Date: 20110628
  Transmission Date: 20111010
  Serious: No
  Sender: FDA-Public Use
  Company Number: None

PATIENT
  Sex: Male
  Weight: 92.4 kg

DRUGS (8)
  1. ONCASPAR [Suspect]
     Dosage: 10375 IU
     Dates: end: 20110523
  2. DOXORUBICIN HYDROCHLORIDE [Suspect]
     Dosage: 52MG
     Dates: end: 20110422
  3. CYCLOPHOSPHAMIDE [Suspect]
     Dosage: 2000MG
     Dates: end: 20110509
  4. DEXAMETHASONE [Suspect]
     Dosage: 308MG
     Dates: end: 20110428
  5. CYTARABINE [Suspect]
     Dosage: 1200MG
     Dates: end: 20110519
  6. DAUNORUBICIN HCL [Suspect]
     Dosage: 107MG
     Dates: end: 20110415
  7. METHOTREXATE [Suspect]
     Dosage: 30MG
     Dates: end: 20110509
  8. VINCRISTINE SULFATE [Suspect]
     Dosage: 10MG
     Dates: end: 20110531

REACTIONS (1)
  - HYPERGLYCAEMIA [None]
